FAERS Safety Report 8389180-3 (Version None)
Quarter: 2012Q2

REPORT INFORMATION
  Report Type: 
  Country: None (occurrence: None)
  Receive Date: 20120528
  Receipt Date: 20120524
  Transmission Date: 20120825
  Serious: Yes (Disabling)
  Sender: FDA-Public Use
  Company Number: PHHY2012IT019764

PATIENT
  Sex: Male

DRUGS (4)
  1. ARIXTRA [Concomitant]
     Indication: PROPHYLAXIS
     Dates: start: 20110401
  2. ABIRATENONE [Concomitant]
     Dates: start: 20110801
  3. PREDNISONE TAB [Concomitant]
     Dates: start: 20110801
  4. ZOMETA [Suspect]
     Indication: PROSTATE CANCER METASTATIC
     Dosage: 4 MG
     Route: 042
     Dates: start: 20100901, end: 20111001

REACTIONS (4)
  - FISTULA [None]
  - PRIMARY SEQUESTRUM [None]
  - OSTEONECROSIS OF JAW [None]
  - PURULENCE [None]
